FAERS Safety Report 5143086-1 (Version None)
Quarter: 2006Q4

REPORT INFORMATION
  Report Type: 
  Country: None (occurrence: None)
  Receive Date: 20061103
  Receipt Date: 20060915
  Transmission Date: 20070319
  Serious: No
  Sender: FDA-Public Use
  Company Number: FR-AMGEN-UK193631

PATIENT
  Age: 39 Year
  Sex: Male
  Weight: 110 kg

DRUGS (4)
  1. KEPIVANCE [Suspect]
     Indication: MUCOSAL INFLAMMATION
     Route: 042
     Dates: start: 20060904, end: 20060906
  2. VP-16 [Concomitant]
     Route: 065
  3. MITOXANTRONE [Concomitant]
     Dates: start: 20060907, end: 20060907
  4. ARACYTINE [Concomitant]
     Dates: start: 20060907, end: 20060909

REACTIONS (2)
  - PERIORBITAL OEDEMA [None]
  - RASH [None]
